FAERS Safety Report 14939215 (Version 1)
Quarter: 2018Q2

REPORT INFORMATION
  Report Type: Spontaneous
  Country: US (occurrence: US)
  Receive Date: 20180507
  Receipt Date: 20180507
  Transmission Date: 20180711
  Serious: Yes (Life-Threatening, Disabling, Other)
  Sender: FDA-Public Use
  Company Number: None

PATIENT
  Age: 33 Year
  Sex: Female
  Weight: 54.43 kg

DRUGS (1)
  1. KENALOG [Suspect]
     Active Substance: TRIAMCINOLONE ACETONIDE
     Indication: PRODUCT USED FOR UNKNOWN INDICATION
     Dosage: INJECTED INTO SPINAL AREA
     Dates: start: 20170526, end: 20170526

REACTIONS (27)
  - Dizziness [None]
  - Blood pressure decreased [None]
  - Headache [None]
  - Pain [None]
  - Hypoaesthesia [None]
  - Blood pressure increased [None]
  - Infection [None]
  - Temperature intolerance [None]
  - Nervous system disorder [None]
  - Speech disorder [None]
  - Tinnitus [None]
  - Amnesia [None]
  - Pyrexia [None]
  - Dyspnoea [None]
  - Joint swelling [None]
  - Syncope [None]
  - Rash [None]
  - Muscle twitching [None]
  - Pain in extremity [None]
  - Arthralgia [None]
  - Agitation [None]
  - Autoimmune disorder [None]
  - Eye disorder [None]
  - Anxiety [None]
  - Hyperhidrosis [None]
  - Muscle spasms [None]
  - Vision blurred [None]

NARRATIVE: CASE EVENT DATE: 20170526
